FAERS Safety Report 9407364 (Version 1)
Quarter: 2013Q3

REPORT INFORMATION
  Report Type: Spontaneous
  Country: ZA (occurrence: ZA)
  Receive Date: 20130718
  Receipt Date: 20130718
  Transmission Date: 20140515
  Serious: Yes (Death, Hospitalization)
  Sender: FDA-Public Use
  Company Number: ZA-B.I. PHARMACEUTICALS,INC./RIDGEFIELD-2013-AP-00572ZA

PATIENT
  Sex: Female

DRUGS (8)
  1. PRADAXA [Suspect]
     Indication: ATRIAL FIBRILLATION
     Dosage: 220 MG
     Route: 048
     Dates: start: 20130615, end: 20130708
  2. LUMIGAN [Concomitant]
     Indication: HEMIANOPIA HOMONYMOUS
  3. LUMIGAN [Concomitant]
     Indication: INTRAOCULAR PRESSURE INCREASED
  4. ISOPTO-CARPINE 4% [Concomitant]
     Indication: HEMIANOPIA HOMONYMOUS
  5. ISOPTO-CARPINE 4% [Concomitant]
     Indication: INTRAOCULAR PRESSURE INCREASED
  6. VERAPAMIL [Concomitant]
     Indication: ATRIAL FIBRILLATION
     Dosage: 240 MG
     Route: 048
  7. VERAPAMIL [Concomitant]
     Indication: HYPERTENSION
  8. LORSARTAN [Concomitant]
     Indication: HYPERTENSION

REACTIONS (1)
  - Lymphoma [Fatal]
